FAERS Safety Report 15145033 (Version 2)
Quarter: 2018Q3

REPORT INFORMATION
  Report Type: Report from Study
  Country: CA (occurrence: CA)
  Receive Date: 20180713
  Receipt Date: 20180716
  Transmission Date: 20181010
  Serious: Yes (Death, Hospitalization, Other)
  Sender: FDA-Public Use
  Company Number: CA-009507513-1807CAN005338

PATIENT
  Age: 64 Year
  Sex: Male

DRUGS (10)
  1. COUMARIN [Concomitant]
     Active Substance: COUMARIN
     Indication: PRODUCT USED FOR UNKNOWN INDICATION
     Dosage: 2 MG, ONCE DAILY
     Route: 065
  2. TEMOZOLOMIDE. [Suspect]
     Active Substance: TEMOZOLOMIDE
     Indication: MALIGNANT NEOPLASM PROGRESSION
     Dosage: 1 DF, QD
     Route: 065
  3. SANDOSTATIN [Suspect]
     Active Substance: OCTREOTIDE ACETATE
     Indication: NEUROENDOCRINE TUMOUR
     Dosage: 30 MG, ONCE PER MONTH
     Route: 030
     Dates: start: 20140912
  4. STREPTOZOCIN [Concomitant]
     Active Substance: STREPTOZOCIN
     Indication: PRODUCT USED FOR UNKNOWN INDICATION
     Dosage: UNK
     Route: 065
     Dates: start: 20150202, end: 20150206
  5. SANDOSTATIN [Suspect]
     Active Substance: OCTREOTIDE ACETATE
     Dosage: 1 UNK, TOTAL
     Route: 058
     Dates: start: 20140911, end: 20140911
  6. 5 FU MEDAC [Concomitant]
     Indication: PRODUCT USED FOR UNKNOWN INDICATION
     Dosage: UNK
     Route: 065
     Dates: start: 20150202, end: 20150206
  7. COUMADINE [Concomitant]
     Active Substance: WARFARIN SODIUM
     Indication: PRODUCT USED FOR UNKNOWN INDICATION
     Route: 065
  8. DEXAMETHASONE. [Suspect]
     Active Substance: DEXAMETHASONE
     Indication: DIARRHOEA
     Dosage: 8 MG, ONCE PER MONTH
     Route: 058
  9. ONDANSETRON [Suspect]
     Active Substance: ONDANSETRON
     Indication: NAUSEA
     Dosage: 8 MG, ONCE DAILY
     Route: 065
  10. SANDOSTATIN [Suspect]
     Active Substance: OCTREOTIDE ACETATE
     Dosage: 30 MG, UNK
     Route: 030
     Dates: start: 20150106, end: 20161114

REACTIONS (62)
  - Pain in extremity [Fatal]
  - Hot flush [Fatal]
  - Faeces pale [Fatal]
  - Amnesia [Fatal]
  - Haemorrhoids [Fatal]
  - Gait disturbance [Fatal]
  - Drug ineffective [Fatal]
  - Cachexia [Fatal]
  - Nocturia [Fatal]
  - Myalgia [Fatal]
  - Death [Fatal]
  - Blood pressure abnormal [Fatal]
  - Diarrhoea [Fatal]
  - Muscular weakness [Fatal]
  - Peripheral swelling [Fatal]
  - Serum serotonin increased [Fatal]
  - Chills [Fatal]
  - Heart rate irregular [Fatal]
  - Hypoaesthesia [Fatal]
  - Flushing [Fatal]
  - Insomnia [Fatal]
  - Oedema [Fatal]
  - Nausea [Fatal]
  - Malignant neoplasm progression [Fatal]
  - Skin exfoliation [Fatal]
  - Injection site pain [Fatal]
  - International normalised ratio increased [Fatal]
  - Abdominal pain [Fatal]
  - Dizziness [Fatal]
  - Erythema [Fatal]
  - Retching [Fatal]
  - Vertigo [Fatal]
  - Hunger [Fatal]
  - Product use in unapproved indication [Fatal]
  - Frequent bowel movements [Fatal]
  - Tricuspid valve disease [Fatal]
  - Weight decreased [Fatal]
  - Decreased appetite [Fatal]
  - Blood pressure systolic increased [Fatal]
  - Cognitive disorder [Fatal]
  - Haematochezia [Fatal]
  - Asthenia [Fatal]
  - Fatigue [Fatal]
  - Paraesthesia [Fatal]
  - Inappropriate schedule of drug administration [Fatal]
  - Hypoaesthesia oral [Fatal]
  - Thrombosis [Fatal]
  - Confusional state [Fatal]
  - Haemorrhoidal haemorrhage [Fatal]
  - Cardiac valve disease [Fatal]
  - Muscle spasms [Fatal]
  - Radiculopathy [Fatal]
  - Feeling cold [Fatal]
  - Blood pressure diastolic decreased [Fatal]
  - Heart rate increased [Fatal]
  - Flatulence [Fatal]
  - Peripheral swelling [Fatal]
  - Pain [Fatal]
  - Off label use [Fatal]
  - Metastases to thorax [Fatal]
  - Musculoskeletal chest pain [Fatal]
  - Rash [Fatal]

NARRATIVE: CASE EVENT DATE: 2014
